FAERS Safety Report 4359393-6 (Version None)
Quarter: 2004Q2

REPORT INFORMATION
  Report Type: 
  Country: None (occurrence: None)
  Receive Date: 20040514
  Receipt Date: 20040514
  Transmission Date: 20050107
  Serious: Yes (Death, Other)
  Sender: FDA-Public Use
  Company Number: None

PATIENT
  Age: 35 Year
  Sex: Male
  Weight: 71.6683 kg

DRUGS (2)
  1. BUSPAR [Suspect]
     Dosage: 5 MG 2 TABLETS 3 TIMES DAILY
  2. CELEXA [Suspect]
     Dosage: 10 MG 1 TABLETS EVERY MORNING

REACTIONS (5)
  - COMPLETED SUICIDE [None]
  - DYSURIA [None]
  - SOFT TISSUE DISORDER [None]
  - URETHRAL DISORDER [None]
  - URINARY INCONTINENCE [None]
